FAERS Safety Report 5767507-6 (Version None)
Quarter: 2008Q2

REPORT INFORMATION
  Report Type: 
  Country: None (occurrence: None)
  Receive Date: 20080611
  Receipt Date: 20080611
  Transmission Date: 20081010
  Serious: Yes (Hospitalization)
  Sender: FDA-Public Use
  Company Number: None

PATIENT
  Age: 76 Year
  Sex: Male
  Weight: 72.6 kg

DRUGS (2)
  1. BACLOFEN [Suspect]
     Indication: MUSCLE RELAXANT THERAPY
     Dosage: 10 MG TID PO
     Route: 048
     Dates: start: 20080523, end: 20080528
  2. FUROSEMIDE [Suspect]
     Indication: DIURETIC THERAPY
     Dosage: 20 MG EVERY DAY PO
     Route: 048
     Dates: start: 20021016, end: 20080528

REACTIONS (3)
  - ANGIOPATHY [None]
  - DIZZINESS [None]
  - SYNCOPE [None]
